FAERS Safety Report 24239833 (Version 2)
Quarter: 2024Q3

REPORT INFORMATION
  Report Type: Spontaneous
  Country: US (occurrence: US)
  Receive Date: 20240822
  Receipt Date: 20240909
  Transmission Date: 20241017
  Serious: Yes (Other)
  Sender: TEVA
  Company Number: US-TEVA-VS-3234585

PATIENT
  Age: 53 Year
  Sex: Female

DRUGS (6)
  1. PREDNISONE [Suspect]
     Active Substance: PREDNISONE
     Indication: Foreign body reaction
     Dosage: 2-WEEK TAPER STARTING AT 60MG
     Route: 065
  2. PREDNISONE [Suspect]
     Active Substance: PREDNISONE
     Indication: Foreign body reaction
     Route: 065
  3. PREDNISONE [Suspect]
     Active Substance: PREDNISONE
     Indication: Foreign body reaction
     Route: 065
  4. DOXYCYCLINE [Concomitant]
     Active Substance: DOXYCYCLINE\DOXYCYCLINE HYCLATE
     Indication: Foreign body reaction
     Route: 065
  5. HYALURONIDASE [Suspect]
     Active Substance: HYALURONIDASE\HYALURONIDASE (HUMAN RECOMBINANT)
     Indication: Foreign body reaction
     Route: 065
  6. TRIAMCINOLONE [Suspect]
     Active Substance: TRIAMCINOLONE
     Indication: Foreign body reaction
     Dosage: 10 TO 30 MG/CC FOR APPROXIMATELY 2 WEEKS
     Route: 026

REACTIONS (2)
  - Drug ineffective [Unknown]
  - Rebound effect [Unknown]
